FAERS Safety Report 4601759-0 (Version None)
Quarter: 2005Q1

REPORT INFORMATION
  Report Type: 
  Country: None (occurrence: None)
  Receive Date: 20050131
  Receipt Date: 20041209
  Transmission Date: 20050727
  Serious: No
  Sender: FDA-Public Use
  Company Number: 200419461US

PATIENT
  Age: 32 Year
  Sex: Female

DRUGS (4)
  1. TELITHROMYCIN (KETEK) TABLETS [Suspect]
     Indication: SINUSITIS
     Dosage: 400 MG BID PO
     Route: 048
     Dates: start: 20041130, end: 20041202
  2. LORATADINE (CLARITIN) [Concomitant]
  3. PRILOSEC [Concomitant]
  4. ETHINYLESTRADIOL,  NORGESTIMATE (ORTHO TRI-CYCLEN) [Concomitant]

REACTIONS (7)
  - ASTHENOPIA [None]
  - DIPLOPIA [None]
  - DIZZINESS [None]
  - FATIGUE [None]
  - FEELING ABNORMAL [None]
  - VISION BLURRED [None]
  - VOMITING [None]
